FAERS Safety Report 22090346 (Version 1)
Quarter: 2023Q1

REPORT INFORMATION
  Report Type: Spontaneous
  Country: US (occurrence: None)
  Receive Date: 20230313
  Receipt Date: 20230313
  Transmission Date: 20230418
  Serious: No
  Sender: FDA-Public Use
  Company Number: None

PATIENT
  Sex: Female

DRUGS (1)
  1. SOFOSBUVIR\VELPATASVIR [Suspect]
     Active Substance: SOFOSBUVIR\VELPATASVIR
     Dosage: OTHER QUANTITY : 400MG-100MG;?FREQUENCY : DAILY;?
     Route: 048

REACTIONS (4)
  - Hot flush [None]
  - Dyspnoea [None]
  - Cough [None]
  - Nausea [None]
